FAERS Safety Report 6175042-9 (Version None)
Quarter: 2009Q2

REPORT INFORMATION
  Report Type: 
  Country: None (occurrence: None)
  Receive Date: 20090430
  Receipt Date: 20090422
  Transmission Date: 20091009
  Serious: Yes (Other)
  Sender: FDA-Public Use
  Company Number: US-GILEAD-2009-0021637

PATIENT
  Age: 41 Year
  Sex: Female

DRUGS (4)
  1. VIREAD [Suspect]
  2. EPIVIR [Concomitant]
  3. SUSTIVA [Concomitant]
  4. KALETRA [Concomitant]

REACTIONS (1)
  - OSTEOMALACIA [None]
